FAERS Safety Report 12942270 (Version 1)
Quarter: 2016Q4

REPORT INFORMATION
  Report Type: Spontaneous
  Country: US (occurrence: US)
  Receive Date: 20161114
  Receipt Date: 20161114
  Transmission Date: 20170207
  Serious: No
  Sender: FDA-Public Use
  Company Number: US-ASTRAZENECA-2016SF13220

PATIENT
  Age: 71 Year
  Sex: Female

DRUGS (7)
  1. VITAMIN D [Concomitant]
     Active Substance: CHOLECALCIFEROL
  2. VITAMIN A [Concomitant]
     Active Substance: VITAMIN A
  3. IRBESARTAN. [Concomitant]
     Active Substance: IRBESARTAN
  4. CLONIDINE. [Concomitant]
     Active Substance: CLONIDINE
  5. JANUVIA [Concomitant]
     Active Substance: SITAGLIPTIN PHOSPHATE
  6. TOPROL XL [Suspect]
     Active Substance: METOPROLOL SUCCINATE
     Indication: HYPERTENSION
     Route: 048
  7. PRANDIN [Concomitant]
     Active Substance: REPAGLINIDE
     Dosage: DAILY

REACTIONS (1)
  - Peripheral swelling [Recovered/Resolved]
